FAERS Safety Report 23469321 (Version 1)
Quarter: 2024Q1

REPORT INFORMATION
  Report Type: Spontaneous
  Country: FR (occurrence: FR)
  Receive Date: 20240202
  Receipt Date: 20240202
  Transmission Date: 20240409
  Serious: Yes (Hospitalization)
  Sender: FDA-Public Use
  Company Number: None

PATIENT
  Age: 63 Year
  Sex: Male
  Weight: 100 kg

DRUGS (4)
  1. HYDROCHLOROTHIAZIDE\IRBESARTAN [Suspect]
     Active Substance: HYDROCHLOROTHIAZIDE\IRBESARTAN
     Indication: Hypertension
     Dosage: 1 DF, QD
     Route: 048
  2. LERCANIDIPINE HYDROCHLORIDE [Suspect]
     Active Substance: LERCANIDIPINE HYDROCHLORIDE
     Indication: Hypertension
     Dosage: 10 MG, BID
     Route: 048
     Dates: end: 20240113
  3. TAHOR [Suspect]
     Active Substance: ATORVASTATIN CALCIUM
     Indication: Product used for unknown indication
     Dosage: 10 MG, QD
     Route: 048
     Dates: end: 20230725
  4. ELIQUIS [Suspect]
     Active Substance: APIXABAN
     Indication: Factor V Leiden mutation
     Dosage: 2.5 MG, BID
     Route: 048
     Dates: start: 20230416

REACTIONS (2)
  - Melanoderma [Not Recovered/Not Resolved]
  - Myositis [Not Recovered/Not Resolved]

NARRATIVE: CASE EVENT DATE: 20230501
